FAERS Safety Report 7900276-X (Version None)
Quarter: 2011Q4

REPORT INFORMATION
  Report Type: 
  Country: None (occurrence: None)
  Receive Date: 20111108
  Receipt Date: 20111027
  Transmission Date: 20120403
  Serious: Yes (Hospitalization)
  Sender: FDA-Public Use
  Company Number: CA-JNJFOC-20111100938

PATIENT
  Sex: Male
  Weight: 78.02 kg

DRUGS (5)
  1. FOLIC ACID [Concomitant]
     Route: 065
  2. METHOTREXATE [Concomitant]
     Route: 065
  3. VITAMIN B-12 [Concomitant]
     Route: 065
  4. REMICADE [Suspect]
     Indication: CROHN'S DISEASE
     Route: 042
     Dates: start: 20090702, end: 20110912
  5. PREDNISONE [Concomitant]
     Route: 065

REACTIONS (2)
  - FISTULA [None]
  - ABSCESS [None]
